FAERS Safety Report 17671753 (Version 2)
Quarter: 2020Q2

REPORT INFORMATION
  Report Type: Spontaneous
  Country: US (occurrence: US)
  Receive Date: 20200415
  Receipt Date: 20200513
  Transmission Date: 20200713
  Serious: No
  Sender: FDA-Public Use
  Company Number: US-APOTEX-2020AP009911

PATIENT
  Sex: Male

DRUGS (1)
  1. FENTANYL. [Suspect]
     Active Substance: FENTANYL
     Indication: PAIN
     Dosage: 1 DF, ONE EVERY 72 HOURS
     Route: 062

REACTIONS (4)
  - Product adhesion issue [Unknown]
  - Product size issue [Unknown]
  - Drug ineffective [Unknown]
  - Product substitution issue [Unknown]
